FAERS Safety Report 11196036 (Version 1)
Quarter: 2015Q2

REPORT INFORMATION
  Report Type: Spontaneous
  Country: CH (occurrence: CH)
  Receive Date: 20150617
  Receipt Date: 20150617
  Transmission Date: 20150821
  Serious: Yes (Other)
  Sender: FDA-Public Use
  Company Number: CH-LPDUSPRD-20150426

PATIENT
  Age: 86 Year
  Sex: Male

DRUGS (13)
  1. ZANIDIP [Concomitant]
     Active Substance: LERCANIDIPINE HYDROCHLORIDE
     Dosage: DOSE NOT PROVIDED
     Route: 065
  2. ADALAT [Concomitant]
     Active Substance: NIFEDIPINE
     Dosage: DOSE NOT PROVIDED
     Route: 065
  3. CONCOR [Concomitant]
     Active Substance: BISOPROLOL FUMARATE
     Dosage: DOSE NOT PROVIDED
     Route: 065
  4. LISINOPRIL. [Concomitant]
     Active Substance: LISINOPRIL
     Dosage: DOSE NOT PROVIDED
     Route: 065
  5. CARDURA [Concomitant]
     Active Substance: DOXAZOSIN MESYLATE
     Dosage: DOSE NOT PROVIDED
     Route: 065
  6. TOREM [Concomitant]
     Active Substance: TORSEMIDE
     Dosage: DOSE NOT PROVIDED
     Route: 065
  7. FERINJECT [Suspect]
     Active Substance: FERRIC CARBOXYMALTOSE
     Dosage: 100 MG
     Route: 040
     Dates: start: 20141110, end: 20141110
  8. VIDE [Concomitant]
     Dosage: 3 DOSAGE FORMS
     Route: 065
  9. FRAGMIN [Concomitant]
     Active Substance: DALTEPARIN SODIUM
     Dosage: 2500MG
     Route: 042
  10. ATORVASTATIN [Concomitant]
     Active Substance: ATORVASTATIN
     Dosage: DOSE NOT PROVIDED
     Route: 065
  11. MARCOUMAR [Concomitant]
     Active Substance: PHENPROCOUMON
     Dosage: DOSE NOT PROVIDED
     Route: 065
  12. PATOZOL [Concomitant]
     Dosage: DOSE NOT PROVIDED
     Route: 065
  13. ZYLORIC [Concomitant]
     Active Substance: ALLOPURINOL
     Dosage: DOSE NOT PROVIDED
     Route: 065

REACTIONS (4)
  - Hyperhidrosis [Unknown]
  - Blood pressure decreased [Unknown]
  - Dyspnoea [Unknown]
  - Abdominal pain upper [Unknown]

NARRATIVE: CASE EVENT DATE: 20141110
